FAERS Safety Report 9365243 (Version 2)
Quarter: 2013Q3

REPORT INFORMATION
  Report Type: Spontaneous
  Country: US (occurrence: US)
  Receive Date: 20130625
  Receipt Date: 20130731
  Transmission Date: 20140515
  Serious: No
  Sender: FDA-Public Use
  Company Number: US-009507513-1306USA010172

PATIENT
  Sex: Female
  Weight: 102.4 kg

DRUGS (1)
  1. JANUMET [Suspect]
     Indication: TYPE 2 DIABETES MELLITUS
     Dosage: 50/500 MG, BID
     Route: 048
     Dates: start: 201102, end: 201306

REACTIONS (3)
  - Haematochezia [Unknown]
  - Muscle spasms [Unknown]
  - Diarrhoea [Recovering/Resolving]
